FAERS Safety Report 14276915 (Version 1)
Quarter: 2017Q4

REPORT INFORMATION
  Report Type: Spontaneous
  Country: CN (occurrence: CN)
  Receive Date: 20171212
  Receipt Date: 20171212
  Transmission Date: 20180321
  Serious: Yes (Hospitalization, Other)
  Sender: FDA-Public Use
  Company Number: CN-BAYER-2017-233225

PATIENT
  Age: 65 Year
  Sex: Male

DRUGS (4)
  1. AVELOX [Suspect]
     Active Substance: MOXIFLOXACIN HYDROCHLORIDE
     Indication: PNEUMONIA
     Dosage: UNK
     Dates: start: 20170728, end: 20170803
  2. GRANULOCYTE COLONY STIMULATING FACTOR [Concomitant]
     Active Substance: GRANULOCYTE COLONY-STIMULATING FACTOR NOS
     Dosage: UNK
  3. IMIPENEM [Concomitant]
     Active Substance: IMIPENEM
     Indication: PNEUMONIA
     Dosage: UNK
     Dates: start: 20170728, end: 20170803
  4. CILASTATIN [Concomitant]
     Active Substance: CILASTATIN
     Indication: PNEUMONIA
     Dosage: UNK
     Dates: start: 20170728, end: 20170803

REACTIONS (2)
  - Body temperature abnormal [None]
  - Pneumonia [None]
